FAERS Safety Report 9613520 (Version 1)
Quarter: 2013Q4

REPORT INFORMATION
  Report Type: Spontaneous
  Country: US (occurrence: US)
  Receive Date: 20131010
  Receipt Date: 20131010
  Transmission Date: 20140711
  Serious: Yes (Other)
  Sender: FDA-Public Use
  Company Number: US-PFIZER INC-2013289534

PATIENT
  Sex: Female

DRUGS (1)
  1. LYRICA [Suspect]
     Indication: NERVE INJURY
     Dosage: UNK

REACTIONS (9)
  - Off label use [Unknown]
  - Chronic lymphocytic leukaemia [Unknown]
  - Neoplasm malignant [Unknown]
  - Asthma [Unknown]
  - Hypopnoea [Unknown]
  - Hearing impaired [Unknown]
  - Sensitisation [Unknown]
  - Pain [Unknown]
  - Arthritis [Unknown]
